FAERS Safety Report 15413648 (Version 3)
Quarter: 2018Q4

REPORT INFORMATION
  Report Type: Spontaneous
  Country: ES (occurrence: ES)
  Receive Date: 20180921
  Receipt Date: 20181109
  Transmission Date: 20190204
  Serious: Yes (Hospitalization)
  Sender: FDA-Public Use
  Company Number: ES-JNJFOC-20180906034

PATIENT
  Age: 38 Year
  Sex: Female
  Weight: 55 kg

DRUGS (4)
  1. STELARA [Suspect]
     Active Substance: USTEKINUMAB
     Indication: CROHN^S DISEASE
     Dosage: 130MG / 26ML,
     Route: 042
     Dates: start: 20180710
  2. OPTOVITE B12 [Concomitant]
     Active Substance: CYANOCOBALAMIN
     Dosage: START PERIOD 167 (DAYS)
     Route: 030
     Dates: start: 20180103
  3. OMEPRAZOL MABO [Concomitant]
     Route: 048
     Dates: start: 20180201
  4. STELARA [Suspect]
     Active Substance: USTEKINUMAB
     Indication: CROHN^S DISEASE
     Dosage: DOSE NO 26
     Route: 042
     Dates: start: 20181007

REACTIONS (4)
  - Antinuclear antibody positive [Unknown]
  - Venous thrombosis [Recovering/Resolving]
  - Hypersensitivity vasculitis [Recovered/Resolved]
  - Erythema nodosum [Unknown]

NARRATIVE: CASE EVENT DATE: 20180716
